FAERS Safety Report 11150031 (Version 7)
Quarter: 2016Q1

REPORT INFORMATION
  Report Type: Report from Study
  Country: FR (occurrence: FR)
  Receive Date: 20150529
  Receipt Date: 20160224
  Transmission Date: 20160525
  Serious: Yes (Other)
  Sender: FDA-Public Use
  Company Number: FR-JAZZ-2014-FR-000729

PATIENT
  Age: 55 Year
  Sex: Female
  Weight: 67 kg

DRUGS (8)
  1. MODIODAL [Concomitant]
     Active Substance: MODAFINIL
     Indication: CATAPLEXY
     Dosage: 100 MG, BID
     Route: 048
     Dates: start: 1997
  2. MODIODAL [Concomitant]
     Active Substance: MODAFINIL
     Indication: SOMNOLENCE
  3. XYREM [Suspect]
     Active Substance: SODIUM OXYBATE
     Dosage: 2.25 G, BID
     Route: 048
     Dates: start: 20150618, end: 20160105
  4. XYREM [Suspect]
     Active Substance: SODIUM OXYBATE
     Indication: NARCOLEPSY
     Dosage: 2.25 G, BID
     Route: 048
     Dates: start: 20131028
  5. SEROPLEX [Concomitant]
     Active Substance: ESCITALOPRAM OXALATE
     Indication: CATAPLEXY
     Dosage: 10 MG, UNK
     Dates: start: 2012
  6. CLARITYNE [Concomitant]
     Active Substance: LORATADINE
     Indication: PRODUCT USED FOR UNKNOWN INDICATION
     Dosage: UNK, QD
  7. XYREM [Suspect]
     Active Substance: SODIUM OXYBATE
     Indication: CATAPLEXY
     Dosage: 2.5 G, BID
     Route: 048
  8. MODIODAL [Concomitant]
     Active Substance: MODAFINIL
     Indication: NARCOLEPSY

REACTIONS (26)
  - Tooth disorder [Unknown]
  - Angular cheilitis [Not Recovered/Not Resolved]
  - Depression [Not Recovered/Not Resolved]
  - Amnesia [Not Recovered/Not Resolved]
  - Burning sensation [Recovered/Resolved]
  - Eye infection [Not Recovered/Not Resolved]
  - Nausea [Recovered/Resolved]
  - Sinusitis [Recovered/Resolved]
  - Dysphagia [Unknown]
  - Fatigue [Not Recovered/Not Resolved]
  - Drug dose omission [Unknown]
  - Eye oedema [Not Recovered/Not Resolved]
  - Face oedema [Unknown]
  - Headache [Recovered/Resolved]
  - Arthralgia [Recovered/Resolved]
  - Infection [Recovered/Resolved]
  - Hot flush [Not Recovered/Not Resolved]
  - Dyspnoea [Unknown]
  - Nervousness [Not Recovered/Not Resolved]
  - Chest pain [Unknown]
  - Migraine [Not Recovered/Not Resolved]
  - Pain in extremity [Unknown]
  - Vision blurred [Recovered/Resolved]
  - Saliva altered [Unknown]
  - Back pain [Recovered/Resolved]
  - Muscle spasms [Recovered/Resolved]

NARRATIVE: CASE EVENT DATE: 20131030
